FAERS Safety Report 8357431-7 (Version None)
Quarter: 2012Q2

REPORT INFORMATION
  Report Type: 
  Country: None (occurrence: None)
  Receive Date: 20120514
  Receipt Date: 20120507
  Transmission Date: 20120825
  Serious: Yes (Other)
  Sender: FDA-Public Use
  Company Number: CA-JNJFOC-20120205692

PATIENT
  Sex: Female
  Weight: 79.38 kg

DRUGS (3)
  1. REMICADE [Suspect]
     Route: 042
     Dates: start: 20120209
  2. REMICADE [Suspect]
     Indication: CROHN'S DISEASE
     Route: 042
     Dates: start: 20080101
  3. REMICADE [Suspect]
     Route: 042
     Dates: start: 20090101

REACTIONS (9)
  - INFUSION RELATED REACTION [None]
  - HYPOAESTHESIA ORAL [None]
  - BACK PAIN [None]
  - PRURITUS GENERALISED [None]
  - THROAT IRRITATION [None]
  - PAIN IN JAW [None]
  - DYSPHONIA [None]
  - MUSCULOSKELETAL PAIN [None]
  - FLUSHING [None]
